FAERS Safety Report 4553910-9 (Version None)
Quarter: 2005Q1

REPORT INFORMATION
  Report Type: 
  Country: None (occurrence: None)
  Receive Date: 20050118
  Receipt Date: 20050107
  Transmission Date: 20050727
  Serious: Yes (Death)
  Sender: FDA-Public Use
  Company Number: CA-JNJFOC-20050102232

PATIENT
  Sex: Female
  Weight: 38.28 kg

DRUGS (10)
  1. DURAGESIC [Suspect]
     Indication: CANCER PAIN
     Route: 062
  2. ZOPICLONE [Concomitant]
  3. MS CONTIN [Concomitant]
  4. LORAZEPAM [Concomitant]
  5. TRAZODONE [Concomitant]
  6. PAROXETINE HCL [Concomitant]
  7. OMEPRAZOLE [Concomitant]
  8. FUROSEMIDE [Concomitant]
  9. SENNOSIDES [Concomitant]
  10. DOCUSATE [Concomitant]

REACTIONS (2)
  - ACCIDENTAL OVERDOSE [None]
  - NARCOTIC INTOXICATION [None]
